FAERS Safety Report 23955122 (Version 1)
Quarter: 2024Q2

REPORT INFORMATION
  Report Type: Spontaneous
  Country: US (occurrence: US)
  Receive Date: 20240610
  Receipt Date: 20240610
  Transmission Date: 20240716
  Serious: No
  Sender: FDA-Public Use
  Company Number: US-GLK-002338

PATIENT

DRUGS (3)
  1. PHOTREXA [Suspect]
     Active Substance: RIBOFLAVIN 5^-PHOSPHATE SODIUM
     Indication: Product used for unknown indication
     Route: 047
     Dates: start: 202405, end: 202405
  2. PHOTREXA VISCOUS [Suspect]
     Active Substance: RIBOFLAVIN 5^-PHOSPHATE SODIUM
     Indication: Product used for unknown indication
     Route: 047
     Dates: start: 202405, end: 202405
  3. Bandage Contact Lens (BCL) [Concomitant]

REACTIONS (1)
  - Corneal infiltrates [Not Recovered/Not Resolved]

NARRATIVE: CASE EVENT DATE: 20240514
